FAERS Safety Report 16749594 (Version 2)
Quarter: 2019Q3

REPORT INFORMATION
  Report Type: Spontaneous
  Country: SE (occurrence: SE)
  Receive Date: 20190828
  Receipt Date: 20190903
  Transmission Date: 20191005
  Serious: Yes (Other)
  Sender: FDA-Public Use
  Company Number: SE-ACCORD-152910

PATIENT
  Age: 66 Year
  Sex: Female
  Weight: 83 kg

DRUGS (9)
  1. ATROPINE. [Concomitant]
     Active Substance: ATROPINE
  2. IRINOTECAN FRESENIUS KABI [Suspect]
     Active Substance: IRINOTECAN
     Indication: PANCREATIC CARCINOMA
     Route: 042
     Dates: start: 20190731, end: 20190731
  3. BETAPRED [Concomitant]
     Active Substance: BETAMETHASONE SODIUM PHOSPHATE
  4. ONDANSETRON [Concomitant]
     Active Substance: ONDANSETRON
  5. FLUOROURACIL. [Suspect]
     Active Substance: FLUOROURACIL
     Indication: PANCREATIC CARCINOMA
  6. IRINOTECAN [Suspect]
     Active Substance: IRINOTECAN
     Indication: PANCREATIC CARCINOMA
     Dosage: STOP DATE: 14-AUG-2019
     Route: 042
     Dates: start: 20190731
  7. FOLINIC ACID [Suspect]
     Active Substance: LEUCOVORIN
     Indication: PANCREATIC CARCINOMA
  8. IRINOTECAN [Suspect]
     Active Substance: IRINOTECAN
     Indication: PANCREATIC CARCINOMA
     Dosage: STOP DATE: 14-AUG-2019
     Route: 042
     Dates: start: 20190731
  9. OXALIPLATIN. [Suspect]
     Active Substance: OXALIPLATIN
     Indication: PANCREATIC CARCINOMA
     Dates: start: 20190731, end: 20190731

REACTIONS (5)
  - Hypersensitivity [Recovered/Resolved]
  - Off label use [Unknown]
  - Speech disorder [Recovered/Resolved]
  - Abdominal pain [Recovered/Resolved]
  - Muscle spasms [Recovered/Resolved]

NARRATIVE: CASE EVENT DATE: 20190731
